FAERS Safety Report 8288160-6 (Version None)
Quarter: 2012Q2

REPORT INFORMATION
  Report Type: 
  Country: None (occurrence: None)
  Receive Date: 20120416
  Receipt Date: 20120403
  Transmission Date: 20120825
  Serious: Yes (Hospitalization, Other)
  Sender: FDA-Public Use
  Company Number: DE-FRI-1000029755

PATIENT
  Age: 28 Year
  Sex: Female
  Weight: 64 kg

DRUGS (4)
  1. FEMIBION [Concomitant]
     Indication: VITAMIN SUPPLEMENTATION
     Dosage: 0.4 MG
     Route: 048
  2. ESCITALOPRAM [Suspect]
     Indication: DEPRESSION
     Dosage: 20 MG
     Route: 048
  3. ESCITALOPRAM [Suspect]
     Dosage: 10 MG
     Route: 048
  4. ESCITALOPRAM [Suspect]
     Dosage: 20 MG
     Route: 048

REACTIONS (2)
  - PREGNANCY [None]
  - PYELONEPHRITIS [None]
